FAERS Safety Report 25847891 (Version 1)
Quarter: 2025Q3

REPORT INFORMATION
  Report Type: Other
  Country: US (occurrence: US)
  Receive Date: 20250925
  Receipt Date: 20250925
  Transmission Date: 20251020
  Serious: No
  Sender: SIGMA TAU
  Company Number: US-LEADIANT BIOSCIENCES, INC.-2025LBI000067

PATIENT
  Sex: Male

DRUGS (1)
  1. MATULANE [Suspect]
     Active Substance: PROCARBAZINE HYDROCHLORIDE
     Indication: Brain neoplasm malignant
     Route: 048
     Dates: start: 20241002

REACTIONS (6)
  - Labelled drug-food interaction issue [Unknown]
  - Fatigue [Unknown]
  - Bone pain [Unknown]
  - Arthralgia [Unknown]
  - Headache [Unknown]
  - Brain fog [Unknown]
